FAERS Safety Report 11438146 (Version 1)
Quarter: 2015Q3

REPORT INFORMATION
  Report Type: Other
  Country: IT (occurrence: IT)
  Receive Date: 20150901
  Receipt Date: 20150901
  Transmission Date: 20151125
  Serious: Yes (Hospitalization)
  Sender: FDA-Public Use
  Company Number: IT-NOVEN PHARMACEUTICALS, INC.-14IT010318

PATIENT
  Age: 48 Year
  Sex: Male

DRUGS (3)
  1. PAROXETINE [Suspect]
     Active Substance: PAROXETINE\PAROXETINE HYDROCHLORIDE
     Indication: DRUG ABUSE
     Dosage: 1400 MG, IN TOTAL (20 MG FILM-COATED TABLETS)
     Route: 048
     Dates: start: 20140828, end: 20140828
  2. LEXOTAN [Suspect]
     Active Substance: BROMAZEPAM
     Indication: DRUG ABUSE
     Dosage: 60 ML, IN TOTAL (2.5 MG/ML ORAL DROPS)
     Route: 048
     Dates: start: 20140828, end: 20140828
  3. CYMBALTA [Suspect]
     Active Substance: DULOXETINE HYDROCHLORIDE
     Indication: DRUG ABUSE
     Dosage: 4200 MG, IN TOTAL (GASTRORESISTENT 60 MG CAPSULES)
     Route: 048
     Dates: start: 20140828, end: 20140828

REACTIONS (2)
  - Sopor [Unknown]
  - Drug abuse [Unknown]

NARRATIVE: CASE EVENT DATE: 20140828
